FAERS Safety Report 10621300 (Version 3)
Quarter: 2014Q4

REPORT INFORMATION
  Report Type: Spontaneous
  Country: DE (occurrence: DE)
  Receive Date: 20141203
  Receipt Date: 20141224
  Transmission Date: 20150529
  Serious: Yes (Life-Threatening)
  Sender: FDA-Public Use
  Company Number: DE-PFIZER INC-2014313607

PATIENT
  Age: 26 Year
  Sex: Female
  Weight: 60 kg

DRUGS (4)
  1. VFEND [Suspect]
     Active Substance: VORICONAZOLE
     Indication: TRICHOSPORON INFECTION
     Dosage: 200 MG, 2X/DAY
     Route: 048
     Dates: start: 20141005, end: 20141103
  2. VFEND [Suspect]
     Active Substance: VORICONAZOLE
     Indication: FUNGAL SEPSIS
  3. VFEND [Suspect]
     Active Substance: VORICONAZOLE
     Indication: TRICHOSPORON INFECTION
     Dosage: 200 MG, 2X/DAY
     Route: 042
     Dates: start: 20141104, end: 20141119
  4. VFEND [Suspect]
     Active Substance: VORICONAZOLE
     Indication: FUNGAL SEPSIS

REACTIONS (1)
  - Drug level below therapeutic [Not Recovered/Not Resolved]

NARRATIVE: CASE EVENT DATE: 20141104
